FAERS Safety Report 15128985 (Version 1)
Quarter: 2018Q3

REPORT INFORMATION
  Report Type: Spontaneous
  Country: ES (occurrence: ES)
  Receive Date: 20180711
  Receipt Date: 20180711
  Transmission Date: 20181010
  Serious: Yes (Other)
  Sender: FDA-Public Use
  Company Number: ES-MERCK KGAA-2051711

PATIENT
  Age: 52 Year
  Sex: Female

DRUGS (7)
  1. NOVOTHYROX [Suspect]
     Active Substance: LEVOTHYROXINE SODIUM
     Indication: PRODUCT USED FOR UNKNOWN INDICATION
  2. MORPHINE [Suspect]
     Active Substance: MORPHINE
  3. OSTEOPOR (DURAPATITE) [Suspect]
     Active Substance: TRIBASIC CALCIUM PHOSPHATE
  4. LIDOCAINE. [Suspect]
     Active Substance: LIDOCAINE
  5. IBUPROFEN. [Suspect]
     Active Substance: IBUPROFEN
  6. CELEBREX [Suspect]
     Active Substance: CELECOXIB
  7. DELTIUS [Suspect]
     Active Substance: CHOLECALCIFEROL

REACTIONS (8)
  - Angioedema [Unknown]
  - Drug interaction [Unknown]
  - Deafness unilateral [Unknown]
  - Depression [Unknown]
  - Pruritus generalised [Not Recovered/Not Resolved]
  - Insomnia [Unknown]
  - Back pain [Unknown]
  - Anaphylactic shock [Unknown]
